FAERS Safety Report 7728945-5 (Version None)
Quarter: 2011Q3

REPORT INFORMATION
  Report Type: 
  Country: None (occurrence: None)
  Receive Date: 20110906
  Receipt Date: 20110826
  Transmission Date: 20111222
  Serious: No
  Sender: FDA-Public Use
  Company Number: US-B.I. PHARMACEUTICALS,INC./RIDGEFIELD-2011-BP-20934BP

PATIENT

DRUGS (2)
  1. STATIN [Concomitant]
     Indication: HYPERLIPIDAEMIA
     Route: 065
  2. TRADJENTA [Suspect]
     Indication: TYPE 2 DIABETES MELLITUS
     Route: 065

REACTIONS (1)
  - ARTHRALGIA [None]
